FAERS Safety Report 4440775-9 (Version None)
Quarter: 2004Q3

REPORT INFORMATION
  Report Type: 
  Country: None (occurrence: None)
  Receive Date: 20040728
  Receipt Date: 20040331
  Transmission Date: 20050211
  Serious: No
  Sender: FDA-Public Use
  Company Number: USA040363679

PATIENT
  Age: 44 Year
  Sex: Male
  Weight: 89 kg

DRUGS (2)
  1. STRATTERA [Suspect]
     Indication: ATTENTION DEFICIT/HYPERACTIVITY DISORDER
     Dosage: 40 MG IN THE EVENING
     Dates: start: 20040330
  2. ZOLOFT [Concomitant]

REACTIONS (3)
  - FEELING ABNORMAL [None]
  - HEART RATE INCREASED [None]
  - THINKING ABNORMAL [None]
